FAERS Safety Report 8393293-X (Version None)
Quarter: 2012Q2

REPORT INFORMATION
  Report Type: 
  Country: None (occurrence: None)
  Receive Date: 20120529
  Receipt Date: 20120523
  Transmission Date: 20120825
  Serious: Yes (Other)
  Sender: FDA-Public Use
  Company Number: US-PFIZER INC-2010095322

PATIENT
  Sex: Female
  Weight: 38 kg

DRUGS (4)
  1. LIPITOR [Suspect]
     Indication: BLOOD CHOLESTEROL ABNORMAL
     Dosage: 40 MG, DAILY AT NIGHT
  2. XANAX [Suspect]
     Indication: CRYING
     Dosage: UNK, DAILY
  3. TRAMADOL HCL [Suspect]
     Indication: BURNING SENSATION
     Dosage: UNK, 3X/DAY
  4. ACCUPRIL [Suspect]
     Indication: HYPERTENSION
     Dosage: HALF TABLET IN THE MORNING, ONE WHOLE TABLET AT BEDTIME

REACTIONS (7)
  - NEURALGIA [None]
  - PRURITUS [None]
  - SCIATICA [None]
  - DRUG INEFFECTIVE [None]
  - SPINAL OSTEOARTHRITIS [None]
  - BACK INJURY [None]
  - BURNING SENSATION [None]
